FAERS Safety Report 8673328 (Version 5)
Quarter: 2013Q2

REPORT INFORMATION
  Report Type: Report from Study
  Country: CA (occurrence: CA)
  Receive Date: 20120719
  Receipt Date: 20130506
  Transmission Date: 20140414
  Serious: Yes (Hospitalization)
  Sender: FDA-Public Use
  Company Number: PHHY2012CA061073

PATIENT
  Sex: Male

DRUGS (1)
  1. SANDOSTATIN LAR [Suspect]
     Indication: ACROMEGALY
     Dosage: 30 MG, ONCE A MONTH
     Route: 030
     Dates: start: 20031002

REACTIONS (4)
  - Pneumonia [Unknown]
  - Delirium [Unknown]
  - Dementia [Unknown]
  - Energy increased [Unknown]
